FAERS Safety Report 6027637-0 (Version None)
Quarter: 2009Q1

REPORT INFORMATION
  Report Type: 
  Country: None (occurrence: None)
  Receive Date: 20090105
  Receipt Date: 20080710
  Transmission Date: 20090719
  Serious: No
  Sender: FDA-Public Use
  Company Number: US-BAYER-200813069BCC

PATIENT
  Age: 64 Year
  Sex: Female
  Weight: 50 kg

DRUGS (4)
  1. ALEVE [Suspect]
     Indication: BACK PAIN
     Route: 048
  2. ALEVE [Suspect]
     Dosage: TOTAL DAILY DOSE: 220 MG  UNIT DOSE: 220 MG
     Route: 048
     Dates: start: 20080710, end: 20080710
  3. HIGH BLOOD PRESSURE MEDICATION [Concomitant]
  4. BONIVA [Concomitant]

REACTIONS (1)
  - CONTUSION [None]
